FAERS Safety Report 6840315-0 (Version None)
Quarter: 2010Q3

REPORT INFORMATION
  Report Type: 
  Country: None (occurrence: None)
  Receive Date: 20100709
  Receipt Date: 20100624
  Transmission Date: 20110219
  Serious: Yes (Life-Threatening)
  Sender: FDA-Public Use
  Company Number: HA10-133-AE

PATIENT
  Sex: Female

DRUGS (2)
  1. METFORMIN HCL [Suspect]
     Dosage: ORAL
     Route: 048
     Dates: start: 20100101
  2. POTASSIUM GLUCONATE TAB [Suspect]
     Dosage: THREE TIMES A DAY

REACTIONS (4)
  - ANAPHYLACTIC SHOCK [None]
  - FOOD ALLERGY [None]
  - IODINE ALLERGY [None]
  - PRODUCT SUBSTITUTION ISSUE [None]
